FAERS Safety Report 8581453-4 (Version None)
Quarter: 2012Q3

REPORT INFORMATION
  Report Type: 
  Country: None (occurrence: None)
  Receive Date: 20120809
  Receipt Date: 20120801
  Transmission Date: 20120928
  Serious: Yes (Hospitalization)
  Sender: FDA-Public Use
  Company Number: JP-BRISTOL-MYERS SQUIBB COMPANY-16812729

PATIENT
  Age: 66 Year
  Sex: Male

DRUGS (2)
  1. ERBITUX [Suspect]
     Indication: COLORECTAL CANCER RECURRENT
     Dosage: LAST INF: 23JUL12
     Route: 042
     Dates: start: 20120704, end: 20120723
  2. IRINOTECAN HCL [Concomitant]
     Indication: COLORECTAL CANCER

REACTIONS (1)
  - PRINZMETAL ANGINA [None]
